FAERS Safety Report 5293799-6 (Version None)
Quarter: 2007Q2

REPORT INFORMATION
  Report Type: 
  Country: None (occurrence: None)
  Receive Date: 20070411
  Receipt Date: 20070330
  Transmission Date: 20071010
  Serious: Yes (Death, Other)
  Sender: FDA-Public Use
  Company Number: FR-PFIZER INC-2007025939

PATIENT
  Age: 65 Year
  Sex: Female

DRUGS (3)
  1. TAHOR [Suspect]
     Indication: ISCHAEMIC HEART DISEASE PROPHYLAXIS
  2. ALL OTHER THERAPEUTIC PRODUCTS [Concomitant]
  3. CHLOROTHIAZIDE [Concomitant]

REACTIONS (4)
  - BLOOD CREATINE PHOSPHOKINASE INCREASED [None]
  - CARDIAC DISORDER [None]
  - RENAL FAILURE [None]
  - TRANSAMINASES INCREASED [None]
